FAERS Safety Report 8859218 (Version 4)
Quarter: 2012Q4

REPORT INFORMATION
  Report Type: 
  Country: CN (occurrence: CN)
  Receive Date: 20121024
  Receipt Date: 20121203
  Transmission Date: 20130627
  Serious: Yes (Hospitalization)
  Sender: FDA-Public Use
  Company Number: CN-ABBOTT-12P-035-0997331-00

PATIENT
  Age: 24 Month
  Sex: Male

DRUGS (6)
  1. DEPAKINE [Suspect]
     Indication: EPILEPSY
     Route: 048
     Dates: start: 20120904
  2. DEPAKINE [Suspect]
     Route: 048
     Dates: end: 20120930
  3. DEPAKINE [Suspect]
     Route: 048
     Dates: start: 20121001, end: 20121005
  4. DEPAKINE [Suspect]
     Route: 048
     Dates: start: 20121006, end: 20121009
  5. DEPAKINE [Suspect]
     Route: 048
     Dates: start: 20121010
  6. PHENOBARBITAL [Concomitant]
     Indication: PRODUCT USED FOR UNKNOWN INDICATION
     Dates: end: 20120928

REACTIONS (6)
  - Cyanosis [Unknown]
  - Epilepsy [Recovered/Resolved]
  - Vomiting [Unknown]
  - Loss of consciousness [Unknown]
  - Dysphoria [Recovered/Resolved]
  - Irritability [Recovered/Resolved]
